FAERS Safety Report 9561017 (Version 1)
Quarter: 2013Q3

REPORT INFORMATION
  Report Type: Spontaneous
  Country: US (occurrence: US)
  Receive Date: 20130927
  Receipt Date: 20130927
  Transmission Date: 20140515
  Serious: No
  Sender: FDA-Public Use
  Company Number: US-BIOGENIDEC-2013BI056097

PATIENT
  Sex: Female

DRUGS (5)
  1. TECFIDERA [Suspect]
     Indication: MULTIPLE SCLEROSIS
     Route: 048
     Dates: start: 20130516
  2. TECFIDERA [Suspect]
     Indication: MULTIPLE SCLEROSIS
     Route: 048
     Dates: end: 20130608
  3. POTASSIUM CHLORIDE [Concomitant]
  4. CARBATROL ER [Concomitant]
  5. ZOLPIDEM [Concomitant]

REACTIONS (3)
  - Chest discomfort [Unknown]
  - Somnolence [Unknown]
  - Urinary tract infection [Unknown]
